FAERS Safety Report 4708009-5 (Version None)
Quarter: 2005Q3

REPORT INFORMATION
  Report Type: 
  Country: None (occurrence: None)
  Receive Date: 20050707
  Receipt Date: 20050627
  Transmission Date: 20060218
  Serious: Yes (Hospitalization, Other)
  Sender: FDA-Public Use
  Company Number: IT-BRISTOL-MYERS SQUIBB COMPANY-13017108

PATIENT
  Age: 58 Year
  Sex: Female

DRUGS (4)
  1. CISPLATIN [Suspect]
     Indication: OESOPHAGEAL CANCER METASTATIC
  2. DOCETAXEL [Suspect]
     Indication: OESOPHAGEAL CANCER METASTATIC
  3. FLUOROURACIL [Suspect]
     Indication: OESOPHAGEAL CANCER METASTATIC
  4. DEXAMETHASONE [Suspect]
     Indication: ANTIEMETIC SUPPORTIVE CARE

REACTIONS (4)
  - LARGE INTESTINE PERFORATION [None]
  - MALIGNANT NEOPLASM PROGRESSION [None]
  - OESOPHAGEAL CANCER METASTATIC [None]
  - PERITONITIS [None]
